FAERS Safety Report 5215285-1 (Version None)
Quarter: 2006Q4

REPORT INFORMATION
  Report Type: 
  Country: None (occurrence: None)
  Receive Date: 20061122
  Receipt Date: 20051104
  Transmission Date: 20070319
  Serious: Yes (Other)
  Sender: FDA-Public Use
  Company Number: HQWYE454208NOV05

PATIENT
  Age: 65 Year
  Sex: Female
  Weight: 63.56 kg

DRUGS (1)
  1. PREMARIN [Suspect]
     Indication: ATROPHIC VULVOVAGINITIS
     Dosage: VAGINAL
     Route: 067
     Dates: start: 20051026, end: 20051030

REACTIONS (3)
  - CHEILITIS [None]
  - HYPOAESTHESIA ORAL [None]
  - PARAESTHESIA ORAL [None]
